FAERS Safety Report 5209797-4 (Version None)
Quarter: 2006Q4

REPORT INFORMATION
  Report Type: 
  Country: None (occurrence: None)
  Receive Date: 20061107
  Receipt Date: 20060830
  Transmission Date: 20070319
  Serious: Yes (Hospitalization)
  Sender: FDA-Public Use
  Company Number: IPX00006

PATIENT
  Age: 2 Month
  Sex: Male
  Weight: 3 kg

DRUGS (1)
  1. IPLEX [Suspect]
     Indication: GROWTH RETARDATION
     Dosage: 1.0 MG/KG/DAILY/SC
     Route: 058
     Dates: start: 20060823, end: 20060904

REACTIONS (1)
  - HYPOGLYCAEMIA [None]
